FAERS Safety Report 14483814 (Version 3)
Quarter: 2018Q1

REPORT INFORMATION
  Report Type: Spontaneous
  Country: JP (occurrence: JP)
  Receive Date: 20180205
  Receipt Date: 20180314
  Transmission Date: 20180509
  Serious: Yes (Hospitalization)
  Sender: FDA-Public Use
  Company Number: JP-AMGEN-JPNSP2018015609

PATIENT
  Age: 90 Year
  Sex: Female
  Weight: 43 kg

DRUGS (12)
  1. CONIEL [Concomitant]
     Active Substance: BENIDIPINE HYDROCHLORIDE
     Dosage: 8 MG, QD
     Route: 048
  2. LANSOPRAZOLE. [Concomitant]
     Active Substance: LANSOPRAZOLE
     Dosage: 15 MG, QD
     Route: 048
  3. THYRADIN S [Concomitant]
     Active Substance: LEVOTHYROXINE SODIUM
     Dosage: 50 MUG, QD
     Route: 048
  4. NATRIX [Concomitant]
     Active Substance: INDAPAMIDE
     Dosage: 1 MG, QD
     Route: 048
  5. OLMETEC [Concomitant]
     Active Substance: OLMESARTAN MEDOXOMIL
     Dosage: 10 MG, QD
     Route: 048
  6. ADALAT [Concomitant]
     Active Substance: NIFEDIPINE
     Dosage: 40 MG, BID
     Route: 048
  7. DIART [Concomitant]
     Active Substance: AZOSEMIDE
     Dosage: 60 MG, QD
     Route: 048
  8. ELIQUIS [Concomitant]
     Active Substance: APIXABAN
     Dosage: 2.5 MG, BID
     Route: 048
  9. FEXOFENADINE [Concomitant]
     Active Substance: FEXOFENADINE\FEXOFENADINE HYDROCHLORIDE
     Dosage: 60 MG, BID
     Route: 048
  10. ALBUMIN TANNATE [Concomitant]
     Active Substance: ALBUMIN BOVINE\TANNIC ACID
     Dosage: 1 G, TID
     Route: 048
  11. PRALIA [Suspect]
     Active Substance: DENOSUMAB
     Indication: OSTEOPOROSIS POSTMENOPAUSAL
     Dosage: 60 MG, Q6MO
     Route: 058
     Dates: start: 20171230
  12. CARDENALIN [Concomitant]
     Active Substance: DOXAZOSIN MESYLATE
     Dosage: 2 MG, QID
     Route: 048

REACTIONS (2)
  - Hypocalcaemia [Recovering/Resolving]
  - Decreased appetite [Recovered/Resolved]

NARRATIVE: CASE EVENT DATE: 20180105
